FAERS Safety Report 8419310-6 (Version None)
Quarter: 2012Q2

REPORT INFORMATION
  Report Type: 
  Country: None (occurrence: None)
  Receive Date: 20120607
  Receipt Date: 20120604
  Transmission Date: 20120825
  Serious: No
  Sender: FDA-Public Use
  Company Number: US-PFIZER INC-2012133942

PATIENT
  Sex: Female
  Weight: 100 kg

DRUGS (4)
  1. RELPAX [Suspect]
     Dosage: 40 MG, DAILY
     Dates: start: 20120531, end: 20120601
  2. SEROQUEL [Concomitant]
     Indication: INSOMNIA
     Dosage: 25 MG DAILY AT NIGHT
  3. KLONOPIN [Concomitant]
     Indication: INSOMNIA
     Dosage: 1 MG DAILY AT NIGHT
  4. RELPAX [Suspect]
     Indication: MIGRAINE
     Dosage: 40 MG, DAILY
     Dates: start: 20120524, end: 20120524

REACTIONS (6)
  - MIGRAINE [None]
  - MUSCULOSKELETAL PAIN [None]
  - SENSATION OF HEAVINESS [None]
  - FEELING ABNORMAL [None]
  - CHEST DISCOMFORT [None]
  - PAIN IN EXTREMITY [None]
